FAERS Safety Report 15800051 (Version 2)
Quarter: 2019Q1

REPORT INFORMATION
  Report Type: Report from Study
  Country: US (occurrence: US)
  Receive Date: 20190108
  Receipt Date: 20190117
  Transmission Date: 20190417
  Serious: Yes (Hospitalization, Other)
  Sender: FDA-Public Use
  Company Number: US-JNJFOC-20181228859

PATIENT
  Age: 80 Year
  Sex: Female
  Weight: 57 kg

DRUGS (7)
  1. IMBRUVICA [Suspect]
     Active Substance: IBRUTINIB
     Indication: CHRONIC LYMPHOCYTIC LEUKAEMIA
     Route: 048
     Dates: start: 20181221
  2. NICODERM CQ [Concomitant]
     Active Substance: NICOTINE
     Dosage: 14 MG/24HR PATCH PLACE 1 PATCH ON THE SKIN DAILY
  3. IMBRUVICA [Suspect]
     Active Substance: IBRUTINIB
     Indication: CHRONIC LYMPHOCYTIC LEUKAEMIA
     Route: 048
     Dates: start: 20181028, end: 20181207
  4. IMBRUVICA [Suspect]
     Active Substance: IBRUTINIB
     Indication: CHRONIC LYMPHOCYTIC LEUKAEMIA
     Route: 048
     Dates: start: 20181029
  5. DIMETHICONE. [Concomitant]
     Active Substance: DIMETHICONE
     Indication: RASH
     Dosage: 85 G, UNK
  6. DESYREL [Concomitant]
     Active Substance: TRAZODONE HYDROCHLORIDE
     Dosage: 50 MG, UNK-TAKE 50 MG BY MOUTH AT BEDTIME
  7. PEPCID [Concomitant]
     Active Substance: FAMOTIDINE
     Dosage: 20 MG, BID
     Route: 048

REACTIONS (12)
  - Pleural effusion [Unknown]
  - Night sweats [Unknown]
  - Renal cyst [Unknown]
  - Atelectasis [Unknown]
  - Dyspepsia [Not Recovered/Not Resolved]
  - Weight decreased [Unknown]
  - Pulmonary mass [Unknown]
  - Ascites [Unknown]
  - Diverticulum intestinal [Unknown]
  - Pneumonia [Recovered/Resolved]
  - Sepsis [Recovered/Resolved]
  - Fatigue [Unknown]

NARRATIVE: CASE EVENT DATE: 20181208
